FAERS Safety Report 22114401 (Version 6)
Quarter: 2023Q4

REPORT INFORMATION
  Report Type: Report from Study
  Country: US (occurrence: US)
  Receive Date: 20230320
  Receipt Date: 20231121
  Transmission Date: 20240110
  Serious: Yes (Other)
  Sender: FDA-Public Use
  Company Number: US-INSMED, INC.-2022-03355-US

PATIENT
  Age: 72 Year
  Sex: Female

DRUGS (2)
  1. ARIKAYCE [Suspect]
     Active Substance: AMIKACIN
     Indication: Mycobacterial infection
     Dosage: 590 MILLIGRAM, QD
     Route: 055
     Dates: start: 202211, end: 202211
  2. ARIKAYCE [Suspect]
     Active Substance: AMIKACIN
     Dosage: 590 MILLIGRAM, MODIFIED DOSE
     Route: 055
     Dates: start: 20221128

REACTIONS (10)
  - Decreased appetite [Not Recovered/Not Resolved]
  - Aphonia [Recovering/Resolving]
  - Weight decreased [Unknown]
  - Cough [Not Recovered/Not Resolved]
  - Dysphonia [Recovering/Resolving]
  - Oropharyngeal discomfort [Not Recovered/Not Resolved]
  - Malaise [Not Recovered/Not Resolved]
  - Fatigue [Unknown]
  - Accidental underdose [Unknown]
  - Device leakage [Unknown]

NARRATIVE: CASE EVENT DATE: 20221101
